FAERS Safety Report 7475643-1 (Version None)
Quarter: 2011Q2

REPORT INFORMATION
  Report Type: 
  Country: None (occurrence: None)
  Receive Date: 20110512
  Receipt Date: 20110428
  Transmission Date: 20111010
  Serious: Yes (Hospitalization, Other)
  Sender: FDA-Public Use
  Company Number: JP-JNJFOC-20100707530

PATIENT
  Sex: Male
  Weight: 62 kg

DRUGS (22)
  1. REMICADE [Suspect]
     Route: 042
  2. MUCODYNE [Concomitant]
     Indication: BRONCHITIS CHRONIC
     Route: 048
  3. BONALON [Concomitant]
     Indication: PROPHYLAXIS
     Route: 048
  4. BAKTAR [Concomitant]
     Indication: PROPHYLAXIS
     Dosage: 2 TABS
     Route: 048
  5. REMICADE [Suspect]
     Indication: RHEUMATOID ARTHRITIS
     Route: 042
  6. REMICADE [Suspect]
     Route: 042
  7. FOLIC ACID [Concomitant]
     Indication: PROPHYLAXIS
     Route: 048
  8. CALONAL [Concomitant]
     Indication: PROPHYLAXIS
     Route: 048
  9. FAMOTIDINE [Concomitant]
     Indication: PROPHYLAXIS
     Route: 048
  10. NEOISCOTIN [Concomitant]
     Route: 048
  11. REMICADE [Suspect]
     Dosage: DOSE ALSO REPORTED AS 5MG/L
     Route: 042
  12. REMICADE [Suspect]
     Dosage: 6TH INFUSION  DOSE ALSO REPORTED AS 5MG/L
     Route: 042
  13. PYRIDOXAL PHOSPHATE [Concomitant]
     Indication: PROPHYLAXIS
     Route: 048
  14. NEOISCOTIN [Concomitant]
     Indication: ANTIBIOTIC PROPHYLAXIS
     Route: 048
  15. METHOTREXATE [Suspect]
     Indication: RHEUMATOID ARTHRITIS
     Route: 048
  16. PREDNISOLONE [Concomitant]
     Route: 048
  17. CELECOX [Concomitant]
     Indication: RHEUMATOID ARTHRITIS
     Route: 048
  18. CLARITH [Concomitant]
     Indication: BRONCHITIS CHRONIC
     Route: 048
  19. MESADORIN-S [Concomitant]
     Indication: PROPHYLAXIS
     Route: 048
  20. PARIET [Concomitant]
     Indication: PROPHYLAXIS
     Route: 048
  21. ALLEGRA [Concomitant]
     Indication: PROPHYLAXIS
     Route: 048
  22. REMICADE [Suspect]
     Dosage: DOSE ALSO REPORTED AS 5MG/L
     Route: 042

REACTIONS (1)
  - GASTRIC CANCER [None]
